FAERS Safety Report 21155930 (Version 2)
Quarter: 2022Q3

REPORT INFORMATION
  Report Type: Spontaneous
  Country: IT (occurrence: IT)
  Receive Date: 20220801
  Receipt Date: 20220809
  Transmission Date: 20221026
  Serious: Yes (Life-Threatening, Hospitalization, Other)
  Sender: FDA-Public Use
  Company Number: IT-MLMSERVICE-2022072536898371

PATIENT
  Age: 57 Year
  Sex: Male

DRUGS (1)
  1. CLOZAPINE [Suspect]
     Active Substance: CLOZAPINE
     Indication: Schizophrenia

REACTIONS (10)
  - Eosinophilia [Unknown]
  - Toxicity to various agents [Unknown]
  - Gastrointestinal disorder [Unknown]
  - Haemodynamic instability [Unknown]
  - Overdose [Unknown]
  - Nephropathy toxic [Unknown]
  - Seizure [Unknown]
  - Coma [Recovering/Resolving]
  - Faecaloma [Unknown]
  - Neuroleptic malignant syndrome [Recovering/Resolving]
